FAERS Safety Report 4862839-8 (Version None)
Quarter: 2005Q4

REPORT INFORMATION
  Report Type: 
  Country: None (occurrence: None)
  Receive Date: 20051221
  Receipt Date: 20050107
  Transmission Date: 20060501
  Serious: Yes (Hospitalization)
  Sender: FDA-Public Use
  Company Number: DE-BRISTOL-MYERS SQUIBB COMPANY-13223789

PATIENT
  Age: 30 Year
  Sex: Female
  Weight: 61 kg

DRUGS (3)
  1. KARVEA [Suspect]
     Dates: start: 20030505, end: 20050105
  2. KARVEZIDE TABS 150MG/12.5MG [Suspect]
     Dates: start: 20030505, end: 20050105
  3. INSULIN [Suspect]
     Dates: start: 20021111

REACTIONS (5)
  - CAESAREAN SECTION [None]
  - DRUG EXPOSURE DURING PREGNANCY [None]
  - FOETAL GROWTH RETARDATION [None]
  - PRE-ECLAMPSIA [None]
  - PREGNANCY [None]
